FAERS Safety Report 21384747 (Version 1)
Quarter: 2022Q3

REPORT INFORMATION
  Report Type: Spontaneous
  Country: US (occurrence: US)
  Receive Date: 20220928
  Receipt Date: 20220928
  Transmission Date: 20221027
  Serious: No
  Sender: FDA-Public Use
  Company Number: US-Melinta Therapeutics, LLC-US-MLNT-21-00101

PATIENT
  Age: 36 Year
  Sex: Male

DRUGS (1)
  1. ORBACTIV [Suspect]
     Active Substance: ORITAVANCIN
     Indication: Cellulitis
     Dosage: NOT PROVIDED.
     Route: 041
     Dates: start: 20210818, end: 20210818

REACTIONS (4)
  - Pruritus [Unknown]
  - Swelling of eyelid [Unknown]
  - Erythema of eyelid [Unknown]
  - Urticaria [Unknown]

NARRATIVE: CASE EVENT DATE: 20210818
